FAERS Safety Report 8187057-X (Version None)
Quarter: 2012Q1

REPORT INFORMATION
  Report Type: 
  Country: None (occurrence: None)
  Receive Date: 20120306
  Receipt Date: 20120224
  Transmission Date: 20120608
  Serious: Yes (Congenital Anomaly, Other)
  Sender: FDA-Public Use
  Company Number: DE-SANOFI-AVENTIS-2012SA012850

PATIENT
  Sex: Male

DRUGS (7)
  1. HYDROXYCHLOROQUINE SULFATE [Suspect]
     Route: 064
  2. ACETYLSALICYLIC ACID SRT [Suspect]
     Route: 064
  3. MYCOPHENOLATE MOFETIL [Suspect]
     Indication: SYSTEMIC LUPUS ERYTHEMATOSUS
     Route: 064
  4. AZATHIOPRINE [Suspect]
     Route: 064
  5. ALENDRONIC ACID [Suspect]
     Route: 064
  6. ENALAPRIL MALEATE [Suspect]
     Route: 064
  7. PREDNISONE TAB [Suspect]
     Route: 064

REACTIONS (13)
  - CAMPTODACTYLY CONGENITAL [None]
  - MICROTIA [None]
  - EXTERNAL AUDITORY CANAL ATRESIA [None]
  - CLINODACTYLY [None]
  - BRACHYCEPHALY [None]
  - COLOBOMA [None]
  - CONGENITAL ARTERIAL MALFORMATION [None]
  - FOETAL EXPOSURE DURING PREGNANCY [None]
  - CONGENITAL ANOMALY [None]
  - HYPERTELORISM OF ORBIT [None]
  - OPTIC NERVE HYPOPLASIA [None]
  - CONGENITAL MUSCULOSKELETAL ANOMALY [None]
  - OESOPHAGEAL ATRESIA [None]
